FAERS Safety Report 14227942 (Version 1)
Quarter: 2017Q4

REPORT INFORMATION
  Report Type: Spontaneous
  Country: CA (occurrence: CA)
  Receive Date: 20171127
  Receipt Date: 20171127
  Transmission Date: 20180321
  Serious: Yes (Other)
  Sender: FDA-Public Use
  Company Number: CA-SA-2017SA233026

PATIENT
  Age: 43 Year
  Sex: Male
  Weight: 112.5 kg

DRUGS (25)
  1. DEXEDRINE [Concomitant]
     Active Substance: DEXTROAMPHETAMINE SULFATE
  2. CIPRALEX [Concomitant]
     Active Substance: ESCITALOPRAM OXALATE
  3. LAMICTAL [Concomitant]
     Active Substance: LAMOTRIGINE
  4. NEURONTIN [Concomitant]
     Active Substance: GABAPENTIN
  5. WELLBUTRIN [Concomitant]
     Active Substance: BUPROPION HYDROCHLORIDE
  6. METHOTREXATE. [Concomitant]
     Active Substance: METHOTREXATE
  7. SULFASALAZINE. [Concomitant]
     Active Substance: SULFASALAZINE
  8. ALEVE [Concomitant]
     Active Substance: NAPROXEN SODIUM
  9. RIVOTRIL [Concomitant]
     Active Substance: CLONAZEPAM
  10. ARAVA [Suspect]
     Active Substance: LEFLUNOMIDE
     Dosage: FREQUENCY: QIW (4 TIMES/WEEK)
     Route: 048
  11. ENBREL [Suspect]
     Active Substance: ETANERCEPT
     Indication: ANKYLOSING SPONDYLITIS
     Route: 065
  12. AMITRIPTYLINE [Concomitant]
     Active Substance: AMITRIPTYLINE
  13. OXYNEO [Concomitant]
     Active Substance: OXYCODONE
  14. PROPRANOLOL [Concomitant]
     Active Substance: PROPRANOLOL HYDROCHLORIDE
  15. CELEBREX [Suspect]
     Active Substance: CELECOXIB
     Route: 065
  16. LYRICA [Concomitant]
     Active Substance: PREGABALIN
  17. TRILEPTAL [Concomitant]
     Active Substance: OXCARBAZEPINE
  18. PNEUMOVAX 23 [Concomitant]
     Active Substance: PNEUMOCOCCAL VACCINE, POLYVALENT 23
     Route: 065
     Dates: start: 2017
  19. RITALIN [Concomitant]
     Active Substance: METHYLPHENIDATE HYDROCHLORIDE
  20. SIMPONI [Concomitant]
     Active Substance: GOLIMUMAB
  21. HUMIRA [Concomitant]
     Active Substance: ADALIMUMAB
  22. PREVNAR [Concomitant]
     Active Substance: PNEUMOCOCCAL 7-VALENT CONJUGATE VACCINE (DIPHTHERIA CRM197 PROTEIN)
     Route: 065
     Dates: start: 2017
  23. ENBREL [Suspect]
     Active Substance: ETANERCEPT
     Indication: ANKYLOSING SPONDYLITIS
     Route: 065
     Dates: start: 20080411
  24. PREDNISONE. [Suspect]
     Active Substance: PREDNISONE
     Route: 065
  25. VITAMIN D [Concomitant]
     Active Substance: CHOLECALCIFEROL

REACTIONS (24)
  - Depression [Unknown]
  - Anxiety [Unknown]
  - Weight increased [Unknown]
  - Osteopenia [Unknown]
  - Tinnitus [Unknown]
  - Joint stiffness [Unknown]
  - Loss of personal independence in daily activities [Unknown]
  - Abdominal pain [Unknown]
  - Cerebral disorder [Unknown]
  - Stress [Unknown]
  - Ankylosing spondylitis [Unknown]
  - Spinal cord oedema [Unknown]
  - Meniere^s disease [Unknown]
  - Uveitis [Unknown]
  - Fibromyalgia [Unknown]
  - Limb discomfort [Not Recovered/Not Resolved]
  - Mobility decreased [Unknown]
  - Inflammatory bowel disease [Unknown]
  - Psychiatric symptom [Unknown]
  - Iritis [Unknown]
  - Sleep apnoea syndrome [Unknown]
  - Tendonitis [Unknown]
  - HLA marker study positive [Unknown]
  - Red blood cell sedimentation rate abnormal [Unknown]

NARRATIVE: CASE EVENT DATE: 201610
